FAERS Safety Report 4725328-7 (Version None)
Quarter: 2005Q3

REPORT INFORMATION
  Report Type: 
  Country: None (occurrence: None)
  Receive Date: 20050725
  Receipt Date: 20050711
  Transmission Date: 20060218
  Serious: Yes (Other)
  Sender: FDA-Public Use
  Company Number: 2005-BP-11671RO

PATIENT
  Age: 45 Year
  Sex: Female

DRUGS (2)
  1. CYCLOPHOSPHAMIDE [Suspect]
     Indication: BREAST CANCER
     Dosage: 3 MONTHLY CYCLES
  2. DOXORUBICIN(DOXORUBICIN) [Suspect]
     Indication: BREAST CANCER

REACTIONS (19)
  - ANTI-SS-A ANTIBODY POSITIVE [None]
  - BIOPSY SKIN ABNORMAL [None]
  - BLOOD THYROID STIMULATING HORMONE DECREASED [None]
  - C-REACTIVE PROTEIN INCREASED [None]
  - COLLAGEN DISORDER [None]
  - EPIDERMAL NECROSIS [None]
  - INDURATION [None]
  - INFLAMMATION [None]
  - JOINT RANGE OF MOTION DECREASED [None]
  - METASTASIS [None]
  - MORPHOEA [None]
  - OEDEMA [None]
  - OEDEMA PERIPHERAL [None]
  - SCLERODERMA [None]
  - SKIN DISCOLOURATION [None]
  - SKIN HYPERPIGMENTATION [None]
  - TELANGIECTASIA [None]
  - TENDERNESS [None]
  - TONGUE DISORDER [None]
